FAERS Safety Report 13710538 (Version 1)
Quarter: 2017Q3

REPORT INFORMATION
  Report Type: Spontaneous
  Country: FR (occurrence: FR)
  Receive Date: 20170703
  Receipt Date: 20170703
  Transmission Date: 20171127
  Serious: Yes (Hospitalization)
  Sender: FDA-Public Use
  Company Number: FR-NOVOPROD-551438

PATIENT
  Age: 82 Year
  Sex: Female

DRUGS (16)
  1. CONTRAMAL [Suspect]
     Active Substance: TRAMADOL HYDROCHLORIDE
     Indication: PAIN
     Dosage: 37.5 MG, QD
     Route: 048
     Dates: start: 20170524, end: 20170529
  2. JANUVIA [Suspect]
     Active Substance: SITAGLIPTIN PHOSPHATE
     Indication: DIABETES MELLITUS
     Dosage: 100 MG, QD
     Route: 048
     Dates: end: 20170524
  3. MONOPROST [Concomitant]
     Active Substance: LATANOPROST
     Dosage: 50 MICROGRAM/ML, 1DF EVENING
  4. MOVICOL PLAIN [Concomitant]
     Dosage: 2 DF, QD
  5. LYSANXIA [Suspect]
     Active Substance: PRAZEPAM
     Indication: ANXIETY
     Dosage: 15 MG, QD ((10 DROOPS IN MORNING, 10 AT NOON AND 10 DROOPS IN EVENING)
     Route: 048
     Dates: start: 20170524, end: 20170529
  6. INEXIUM                            /01479302/ [Suspect]
     Active Substance: ESOMEPRAZOLE MAGNESIUM
     Indication: PRODUCT USED FOR UNKNOWN INDICATION
     Dosage: 20 MG, QD (1 DF IN EVENING)
     Route: 048
     Dates: end: 20170529
  7. LANTUS [Suspect]
     Active Substance: INSULIN GLARGINE
     Indication: DIABETES MELLITUS
     Dosage: 14 IU, QD
     Route: 058
  8. MIANSERINE ARROW [Suspect]
     Active Substance: MIANSERIN HYDROCHLORIDE
     Indication: DEPRESSION
     Dosage: 10 MG EVENING
     Route: 048
     Dates: start: 20170524, end: 20170529
  9. METFORMINE ARROW [Suspect]
     Active Substance: METFORMIN HYDROCHLORIDE
     Indication: DIABETES MELLITUS
     Dosage: 1.5 G, QD (1 DF IN MORNING AND 2 DF IN EVENING)
     Route: 048
     Dates: end: 20170529
  10. MEMANTINE. [Suspect]
     Active Substance: MEMANTINE
     Indication: DEMENTIA ALZHEIMER^S TYPE
     Dosage: 20 MG, QD
     Route: 048
     Dates: end: 20170529
  11. DOLIPRANE [Suspect]
     Active Substance: ACETAMINOPHEN
     Indication: PAIN
     Dosage: 3 G, QD
     Route: 048
     Dates: end: 20170529
  12. SERESTA EXPIDET [Concomitant]
     Active Substance: OXAZEPAM
     Dosage: 10 MG, BID
  13. ESCITALOPRAM ARROW [Suspect]
     Active Substance: ESCITALOPRAM OXALATE
     Indication: DEPRESSION
     Dosage: 5 MG, QD
     Route: 048
     Dates: end: 20170527
  14. NOVORAPID [Suspect]
     Active Substance: INSULIN ASPART
     Indication: DIABETES MELLITUS
     Dosage: ACCORDING TO THE GLYCAEMIA
     Route: 058
  15. LOXAPAC                            /00401801/ [Suspect]
     Active Substance: LOXAPINE SUCCINATE
     Indication: ACUTE PSYCHOSIS
     Dosage: 25 MG/ML (5 DROPS AS NEEDED)
     Route: 048
     Dates: start: 20170524, end: 20170529
  16. GALVUS [Suspect]
     Active Substance: VILDAGLIPTIN
     Indication: DIABETES MELLITUS
     Dosage: 50 MG, QD (1DF IN EVENING, IN  REPLACEMENT OF JANUVIA)
     Route: 048
     Dates: start: 20170524, end: 20170529

REACTIONS (3)
  - Encephalopathy [Not Recovered/Not Resolved]
  - Acute kidney injury [Recovered/Resolved]
  - Hepatitis [Recovered/Resolved]

NARRATIVE: CASE EVENT DATE: 20170530
